FAERS Safety Report 6470878-9 (Version None)
Quarter: 2009Q4

REPORT INFORMATION
  Report Type: 
  Country: None (occurrence: None)
  Receive Date: 20091203
  Receipt Date: 20080116
  Transmission Date: 20100525
  Serious: Yes (Hospitalization)
  Sender: FDA-Public Use
  Company Number: DE-ELI_LILLY_AND_COMPANY-DE200801004441

PATIENT
  Sex: Male
  Weight: 99 kg

DRUGS (1)
  1. ALIMTA [Suspect]
     Indication: NON-SMALL CELL LUNG CANCER
     Dosage: 1070, UNKNOWN
     Route: 042
     Dates: start: 20071123

REACTIONS (4)
  - DEHYDRATION [None]
  - ENANTHEMA [None]
  - RASH MACULO-PAPULAR [None]
  - THROMBOCYTOPENIA [None]
